FAERS Safety Report 7954685-3 (Version None)
Quarter: 2011Q4

REPORT INFORMATION
  Report Type: 
  Country: None (occurrence: None)
  Receive Date: 20111202
  Receipt Date: 20111130
  Transmission Date: 20120403
  Serious: Yes (Death, Hospitalization)
  Sender: FDA-Public Use
  Company Number: PHFR2011GB04097

PATIENT
  Sex: Male

DRUGS (5)
  1. CLOZARIL [Suspect]
     Indication: SCHIZOPHRENIA
     Dosage: 450 MG
     Route: 048
     Dates: start: 20070319
  2. FLUOXETINE [Concomitant]
     Indication: DEPRESSION
     Dosage: 40 MG, UNK
     Route: 048
  3. AMISULPRIDE [Concomitant]
     Dosage: 200 MG, UNK
     Route: 048
  4. HYOSCINE HYDROBROMIDE [Concomitant]
     Dosage: 300 MG, UNK
     Route: 048
  5. LAMOTRIGINE [Concomitant]
     Dosage: 25 MG, UNK
     Route: 048
     Dates: start: 20110624

REACTIONS (2)
  - CIRCULATORY COLLAPSE [None]
  - DIABETIC KETOACIDOSIS [None]
